FAERS Safety Report 16037246 (Version 2)
Quarter: 2019Q1

REPORT INFORMATION
  Report Type: Spontaneous
  Country: CN (occurrence: CN)
  Receive Date: 20190305
  Receipt Date: 20190311
  Transmission Date: 20190418
  Serious: Yes (Hospitalization)
  Sender: FDA-Public Use
  Company Number: CN-ELI_LILLY_AND_COMPANY-CN201902012973

PATIENT
  Age: 69 Year
  Sex: Female
  Weight: 57.5 kg

DRUGS (2)
  1. HUMULIN N [Suspect]
     Active Substance: INSULIN HUMAN
     Indication: DIABETES MELLITUS
     Dosage: 20-22 U, BID
     Route: 058
     Dates: start: 2009
  2. METFORMIN [Concomitant]
     Active Substance: METFORMIN HYDROCHLORIDE
     Indication: DIABETES MELLITUS
     Dosage: 1 DF, TID
     Route: 048

REACTIONS (5)
  - Cardiac disorder [Unknown]
  - Blood glucose increased [Unknown]
  - Hypertension [Unknown]
  - Body height decreased [Unknown]
  - Nasopharyngitis [Unknown]
